FAERS Safety Report 8446280-7 (Version None)
Quarter: 2012Q2

REPORT INFORMATION
  Report Type: 
  Country: None (occurrence: None)
  Receive Date: 20120618
  Receipt Date: 20120608
  Transmission Date: 20120825
  Serious: No
  Sender: FDA-Public Use
  Company Number: US-B.I. PHARMACEUTICALS,INC./RIDGEFIELD-2012-BP-13356BP

PATIENT
  Sex: Female

DRUGS (5)
  1. FLECAINIDE ACETATE [Concomitant]
     Indication: ATRIAL FIBRILLATION
     Dosage: 200 MG
     Route: 048
  2. PRADAXA [Suspect]
     Indication: ATRIAL FIBRILLATION
     Dosage: 300 MG
     Route: 048
     Dates: start: 20110201
  3. RAMIPRIL [Concomitant]
     Indication: HYPERTENSION
     Dosage: 10 MG
     Route: 048
  4. MULTI-VITAMIN [Concomitant]
     Indication: SUPPLEMENTATION THERAPY
  5. METOPROLOL SUCCINATE [Concomitant]
     Indication: HYPERTENSION
     Dosage: 50 MG
     Route: 048

REACTIONS (3)
  - RENAL PAIN [None]
  - URINE ODOUR ABNORMAL [None]
  - ARTHRALGIA [None]
